FAERS Safety Report 11935207 (Version 1)
Quarter: 2016Q1

REPORT INFORMATION
  Report Type: Spontaneous
  Country: HU (occurrence: HU)
  Receive Date: 20160121
  Receipt Date: 20160121
  Transmission Date: 20160526
  Serious: Yes (Hospitalization)
  Sender: FDA-Public Use
  Company Number: HU-PFIZER INC-2016022492

PATIENT
  Age: 70 Year
  Sex: Female

DRUGS (1)
  1. XALKORI [Suspect]
     Active Substance: CRIZOTINIB
     Indication: LUNG ADENOCARCINOMA
     Dosage: ONE OF THE DAY DAILY 2X250 MG, ANOTHER DAY 1X250 MG
     Route: 048
     Dates: start: 201502

REACTIONS (2)
  - Blood count abnormal [Unknown]
  - Deep vein thrombosis [Unknown]
